FAERS Safety Report 11671133 (Version 2)
Quarter: 2015Q4

REPORT INFORMATION
  Report Type: Spontaneous
  Country: CH (occurrence: CH)
  Receive Date: 20151028
  Receipt Date: 20151125
  Transmission Date: 20160304
  Serious: Yes (Hospitalization)
  Sender: FDA-Public Use
  Company Number: CH-NOVOPROD-467506

PATIENT
  Age: 77 Year
  Sex: Male
  Weight: 103 kg

DRUGS (5)
  1. RYZODEG 70/30 [Suspect]
     Active Substance: INSULIN ASPART\INSULIN DEGLUDEC
     Indication: TYPE 2 DIABETES MELLITUS
     Dosage: 20 U, BID
     Route: 058
     Dates: start: 20151009, end: 20151012
  2. QUETIAPINE [Concomitant]
     Active Substance: QUETIAPINE
     Indication: PSYCHOTIC DISORDER
     Dosage: 250 MG, QD
  3. ASPIRIN                            /00002701/ [Concomitant]
     Active Substance: ASPIRIN
     Dosage: 100 MG
  4. METFORMIN [Concomitant]
     Active Substance: METFORMIN HYDROCHLORIDE
     Indication: TYPE 2 DIABETES MELLITUS
     Dosage: 1000 MG
  5. NOZINAN                            /00038601/ [Concomitant]
     Active Substance: LEVOMEPROMAZINE
     Indication: PSYCHOTIC DISORDER
     Dosage: 25 MG

REACTIONS (11)
  - Hypertensive crisis [Recovered/Resolved]
  - Hypoglycaemia [Unknown]
  - Atrioventricular block first degree [None]
  - Decreased appetite [None]
  - Hypokalaemia [None]
  - Vomiting [Recovered/Resolved]
  - Glycosylated haemoglobin increased [None]
  - Intracranial pressure increased [Unknown]
  - Drug hypersensitivity [Unknown]
  - Bradycardia [Unknown]
  - Bundle branch block right [None]

NARRATIVE: CASE EVENT DATE: 20151010
